FAERS Safety Report 16162616 (Version 1)
Quarter: 2019Q2

REPORT INFORMATION
  Report Type: Spontaneous
  Country: US (occurrence: US)
  Receive Date: 20190405
  Receipt Date: 20190405
  Transmission Date: 20190711
  Serious: No
  Sender: FDA-Public Use
  Company Number: US-BAYER-2019-065365

PATIENT
  Age: 52 Year
  Sex: Male

DRUGS (1)
  1. ULTRAVIST [Suspect]
     Active Substance: IOPROMIDE
     Indication: HAEMATURIA
     Dosage: 100 MG, ONCE
     Route: 042
     Dates: start: 20190104, end: 20190104

REACTIONS (5)
  - Pruritus [None]
  - Sneezing [None]
  - Pharyngeal swelling [None]
  - Throat tightness [None]
  - Urticaria [None]

NARRATIVE: CASE EVENT DATE: 20190104
